FAERS Safety Report 25791127 (Version 1)
Quarter: 2025Q3

REPORT INFORMATION
  Report Type: Spontaneous
  Country: US (occurrence: None)
  Receive Date: 20250910
  Receipt Date: 20250910
  Transmission Date: 20251021
  Serious: Yes (Life-Threatening)
  Sender: FDA-CTU
  Company Number: None

PATIENT
  Age: 48 Year
  Sex: Male
  Weight: 77.1 kg

DRUGS (2)
  1. XIAFLEX [Suspect]
     Active Substance: COLLAGENASE CLOSTRIDIUM HISTOLYTICUM
     Indication: Peyronie^s disease
     Route: 026
     Dates: start: 20250624, end: 20250908
  2. BUPIVACAINE [Concomitant]
     Active Substance: BUPIVACAINE
     Dates: start: 20250908, end: 20250908

REACTIONS (7)
  - Fall [None]
  - Hyperhidrosis [None]
  - Hyporesponsive to stimuli [None]
  - Blood pressure abnormal [None]
  - Blood pressure systolic decreased [None]
  - Mouth swelling [None]
  - Rash [None]

NARRATIVE: CASE EVENT DATE: 20250908
